FAERS Safety Report 23275496 (Version 2)
Quarter: 2023Q4

REPORT INFORMATION
  Report Type: Spontaneous
  Country: US (occurrence: US)
  Receive Date: 20231208
  Receipt Date: 20231218
  Transmission Date: 20240110
  Serious: No
  Sender: FDA-Public Use
  Company Number: US-BIOGEN-2023BI01239195

PATIENT
  Sex: Female

DRUGS (29)
  1. VUMERITY [Suspect]
     Active Substance: DIROXIMEL FUMARATE
     Indication: Multiple sclerosis
     Dosage: TAKE 2 CAPSULES (462MG) BY MOUTH TWICE DAILY.
     Route: 050
     Dates: start: 20220928
  2. GABAPENTIN [Concomitant]
     Active Substance: GABAPENTIN
     Route: 050
  3. ONDANSETRON HYDROCHLORIDE [Concomitant]
     Active Substance: ONDANSETRON HYDROCHLORIDE
     Route: 050
  4. KEPPRA [Concomitant]
     Active Substance: LEVETIRACETAM
     Route: 050
  5. CYCLOBENZAPRINE HYDROCHLORIDE [Concomitant]
     Active Substance: CYCLOBENZAPRINE HYDROCHLORIDE
     Route: 050
  6. ALBUTEROL [Concomitant]
     Active Substance: ALBUTEROL
     Route: 050
  7. MAGNESIUM OXIDE [Concomitant]
     Active Substance: MAGNESIUM OXIDE
     Route: 050
  8. BENZONATATE [Concomitant]
     Active Substance: BENZONATATE
     Route: 050
  9. FLUTICASONE PROPIONATE [Concomitant]
     Active Substance: FLUTICASONE PROPIONATE
     Route: 050
  10. DIPHENHYDRAMINE HYDROCHLORIDE [Concomitant]
     Active Substance: DIPHENHYDRAMINE HYDROCHLORIDE
     Route: 050
  11. PREDNISONE [Concomitant]
     Active Substance: PREDNISONE
     Route: 050
  12. BROMFED DM [Concomitant]
     Active Substance: BROMPHENIRAMINE MALEATE\DEXTROMETHORPHAN HYDROBROMIDE\PSEUDOEPHEDRINE HYDROCHLORIDE
     Route: 050
  13. POTASSIUM CHLORIDE [Concomitant]
     Active Substance: POTASSIUM CHLORIDE
     Route: 050
  14. FUROSEMIDE [Concomitant]
     Active Substance: FUROSEMIDE
     Route: 050
  15. MEDROXYPROGESTERONE ACETA [Concomitant]
     Route: 050
  16. ESTRADIOL [Concomitant]
     Active Substance: ESTRADIOL
     Route: 050
  17. VALACYCLOVIR HYDROCHLORIDE [Concomitant]
     Active Substance: VALACYCLOVIR HYDROCHLORIDE
     Route: 050
  18. FENOFIBRATE [Concomitant]
     Active Substance: FENOFIBRATE
     Route: 050
  19. MAGNESIUM [Concomitant]
     Active Substance: MAGNESIUM
     Route: 050
  20. ADVAIR DISKUS [Concomitant]
     Active Substance: FLUTICASONE PROPIONATE\SALMETEROL XINAFOATE
     Route: 050
  21. ROSUVASTATIN CALCIUM [Concomitant]
     Active Substance: ROSUVASTATIN CALCIUM
     Route: 050
  22. DOXEPIN HYDROCHLORIDE [Concomitant]
     Active Substance: DOXEPIN HYDROCHLORIDE
     Route: 050
  23. CYMBALTA [Concomitant]
     Active Substance: DULOXETINE HYDROCHLORIDE
     Route: 050
  24. DIPHENHYDRAMINE HYDROCHLORIDE [Concomitant]
     Active Substance: DIPHENHYDRAMINE HYDROCHLORIDE
     Route: 050
  25. VALSARTAN [Concomitant]
     Active Substance: VALSARTAN
     Route: 050
  26. SUMATRIPTAN SUCCINATE [Concomitant]
     Active Substance: SUMATRIPTAN SUCCINATE
     Route: 050
  27. ARMODAFINIL [Concomitant]
     Active Substance: ARMODAFINIL
     Route: 050
  28. IMMUNOGLOBULIN [Concomitant]
     Route: 050
  29. LUNESTA [Concomitant]
     Active Substance: ESZOPICLONE
     Route: 050

REACTIONS (3)
  - Intentional product misuse [Unknown]
  - Product dose omission issue [Unknown]
  - Cough [Unknown]
